FAERS Safety Report 13096330 (Version 1)
Quarter: 2017Q1

REPORT INFORMATION
  Report Type: Spontaneous
  Country: US (occurrence: US)
  Receive Date: 20170109
  Receipt Date: 20170109
  Transmission Date: 20170428
  Serious: Yes (Hospitalization, Other)
  Sender: FDA-Public Use
  Company Number: PHHY2016US181426

PATIENT
  Age: 64 Year
  Sex: Male

DRUGS (5)
  1. WARFARIN [Interacting]
     Active Substance: WARFARIN
     Dosage: 40 UNK, UNK
     Route: 065
  2. LEDIPASVIR [Interacting]
     Active Substance: LEDIPASVIR
     Indication: HEPATITIS C
     Route: 065
     Dates: start: 2015
  3. SOFOSBUVIR [Interacting]
     Active Substance: SOFOSBUVIR
     Indication: HEPATITIS C
     Route: 065
     Dates: start: 2015
  4. WARFARIN [Suspect]
     Active Substance: WARFARIN
     Indication: ATRIAL FIBRILLATION
     Dosage: 30 MG, QW
     Route: 065
     Dates: start: 2011
  5. WARFARIN [Interacting]
     Active Substance: WARFARIN
     Dosage: 35 UNK, UNK
     Route: 065

REACTIONS (5)
  - Gastrointestinal haemorrhage [Unknown]
  - International normalised ratio decreased [Recovered/Resolved]
  - Drug interaction [Unknown]
  - Haemoglobin decreased [Unknown]
  - International normalised ratio increased [Unknown]
